FAERS Safety Report 4950447-X (Version None)
Quarter: 2006Q1

REPORT INFORMATION
  Report Type: 
  Country: None (occurrence: None)
  Receive Date: 20060322
  Receipt Date: 20060213
  Transmission Date: 20060701
  Serious: Yes (Other)
  Sender: FDA-Public Use
  Company Number: 2006AP00690

PATIENT
  Age: 5393 Day
  Sex: Male
  Weight: 67.5 kg

DRUGS (6)
  1. PULMICORT [Suspect]
     Indication: ASTHMA
     Route: 055
     Dates: start: 19970424, end: 20020427
  2. SYMBICORT [Concomitant]
     Route: 055
     Dates: start: 20020201, end: 20020401
  3. BRICANYL [Concomitant]
     Route: 055
  4. ILIADIN [Concomitant]
     Route: 045
  5. SALBUTAMOL [Concomitant]
     Dosage: VIA METERED DOSE INHALER OR NEBULISER
     Route: 055
  6. ATROVENT [Concomitant]
     Dosage: VIA NEBULISER
     Route: 055

REACTIONS (2)
  - METASTATIC NEOPLASM [None]
  - NASOPHARYNGEAL CANCER [None]
